FAERS Safety Report 22390903 (Version 3)
Quarter: 2023Q4

REPORT INFORMATION
  Report Type: Spontaneous
  Country: US (occurrence: US)
  Receive Date: 20230601
  Receipt Date: 20231103
  Transmission Date: 20240109
  Serious: Yes (Hospitalization, Other)
  Sender: FDA-Public Use
  Company Number: US-AUROBINDO-AUR-APL-2023-037050

PATIENT
  Age: 35 Year
  Sex: Male

DRUGS (4)
  1. HYDROXYZINE [Interacting]
     Active Substance: HYDROXYZINE HYDROCHLORIDE
     Indication: Anxiety
     Dosage: 50 MILLIGRAM, ONCE A DAY,NIGHTLY
     Route: 048
  2. HYDROXYZINE [Interacting]
     Active Substance: HYDROXYZINE HYDROCHLORIDE
     Indication: Insomnia
  3. RISPERIDONE [Interacting]
     Active Substance: RISPERIDONE
     Indication: Antipsychotic therapy
     Dosage: 4 MILLIGRAM, ONCE A DAY,NIGHTLY AT BEDTIME
     Route: 048
  4. RISPERIDONE [Interacting]
     Active Substance: RISPERIDONE
     Dosage: 2 MILLIGRAM, ONCE A DAY,NIGHTLY AT BEDTIME
     Route: 048

REACTIONS (3)
  - Priapism [Recovered/Resolved]
  - Erection increased [Recovered/Resolved]
  - Drug interaction [Unknown]
